FAERS Safety Report 11672927 (Version 2)
Quarter: 2017Q3

REPORT INFORMATION
  Report Type: Spontaneous
  Country: IR (occurrence: IR)
  Receive Date: 20151028
  Receipt Date: 20170918
  Transmission Date: 20171127
  Serious: Yes (Other)
  Sender: FDA-Public Use
  Company Number: IR-ACCORD-034913

PATIENT
  Age: 52 Year
  Sex: Male

DRUGS (5)
  1. BEVACIZUMAB. [Concomitant]
     Active Substance: BEVACIZUMAB
     Indication: ADENOCARCINOMA OF COLON
     Dosage: 7.5 MG/KG INTRAVENOUSLY ON DAY 1 THAT WAS GIVEN EVERY 3 WEEKS FOR NEARLY 8 MONTHS
     Route: 042
  2. XELODA [Concomitant]
     Active Substance: CAPECITABINE
     Indication: ADENOCARCINOMA OF COLON
  3. IRINOTECAN [Suspect]
     Active Substance: IRINOTECAN
     Indication: ADENOCARCINOMA OF COLON
  4. OXALIPLATIN. [Suspect]
     Active Substance: OXALIPLATIN
     Indication: ADENOCARCINOMA OF COLON
     Dosage: 130 MG/M2 TWICE A DAY TO 3 CYCLES?RECEIVED 3 WEEK TREATMENT CYCLES
     Route: 042
  5. CAPECITABINE. [Suspect]
     Active Substance: CAPECITABINE
     Indication: ADENOCARCINOMA OF COLON
     Dosage: 1,000 MG/M2 TWICE DAILY TO 3 CYCLE?3 WEEK TREATMENT CYCLES
     Route: 048

REACTIONS (1)
  - Chronic myeloid leukaemia [Recovering/Resolving]
